FAERS Safety Report 17556572 (Version 1)
Quarter: 2020Q1

REPORT INFORMATION
  Report Type: Spontaneous
  Country: TR (occurrence: TR)
  Receive Date: 20200318
  Receipt Date: 20200318
  Transmission Date: 20200409
  Serious: Yes (Death)
  Sender: FDA-Public Use
  Company Number: NVSC2020TR077626

PATIENT
  Sex: Female

DRUGS (3)
  1. CONVULEX [Concomitant]
     Indication: EPILEPSY
     Dosage: UNK
     Route: 065
  2. TEGRETOL XR [Suspect]
     Active Substance: CARBAMAZEPINE
     Indication: EPILEPSY
     Dosage: UNK, 2X1 OR 3X1
     Route: 065
  3. DEPAKIN CHRONO [Concomitant]
     Active Substance: VALPROIC ACID
     Indication: EPILEPSY
     Dosage: UNK
     Route: 065

REACTIONS (1)
  - Epilepsy [Fatal]
